FAERS Safety Report 25649588 (Version 2)
Quarter: 2025Q3

REPORT INFORMATION
  Report Type: Report from Study
  Country: GB (occurrence: GB)
  Receive Date: 20250806
  Receipt Date: 20250818
  Transmission Date: 20251021
  Serious: Yes (Other)
  Sender: EMD SERONO INC
  Company Number: GB-Merck Healthcare KGaA-2025039105

PATIENT
  Sex: Female

DRUGS (6)
  1. MAVENCLAD [Suspect]
     Active Substance: CLADRIBINE
     Indication: Multiple sclerosis
  2. MAVENCLAD [Suspect]
     Active Substance: CLADRIBINE
     Dosage: YEAR ONE WEEK FIVE THERAPY
  3. MAVENCLAD [Suspect]
     Active Substance: CLADRIBINE
  4. MAVENCLAD [Suspect]
     Active Substance: CLADRIBINE
     Dosage: YEAR TWO WEEK FIVE THERAPY
     Dates: start: 20200727
  5. MAVENCLAD [Suspect]
     Active Substance: CLADRIBINE
  6. MAVENCLAD [Suspect]
     Active Substance: CLADRIBINE
     Dosage: YEAR SIX WEEK FIVE THERAPY
     Dates: start: 20250603

REACTIONS (1)
  - Lower respiratory tract infection [Unknown]
